FAERS Safety Report 21118278 (Version 1)
Quarter: 2022Q3

REPORT INFORMATION
  Report Type: Spontaneous
  Country: US (occurrence: US)
  Receive Date: 20220722
  Receipt Date: 20220722
  Transmission Date: 20221027
  Serious: No
  Sender: FDA-Public Use
  Company Number: US-PERRIGO-22US007507

PATIENT
  Sex: Male

DRUGS (1)
  1. MINOXIDIL [Suspect]
     Active Substance: MINOXIDIL
     Indication: Product used for unknown indication
     Dosage: UNKNOWN, UNKNOWN
     Route: 061
     Dates: start: 202205

REACTIONS (5)
  - Application site scab [Unknown]
  - Swelling face [Unknown]
  - Dry skin [Unknown]
  - Application site exfoliation [Unknown]
  - Application site pruritus [Unknown]

NARRATIVE: CASE EVENT DATE: 20220501
